FAERS Safety Report 5735949-0 (Version None)
Quarter: 2008Q2

REPORT INFORMATION
  Report Type: 
  Country: None (occurrence: None)
  Receive Date: 20080509
  Receipt Date: 20080428
  Transmission Date: 20081010
  Serious: Yes (Life-Threatening, Other)
  Sender: FDA-Public Use
  Company Number: 2008TJ0095

PATIENT
  Sex: Female

DRUGS (1)
  1. TWINJECT AUTOINJECTOR (EPINEPHRINE) [Suspect]
     Indication: ANAPHYLACTIC REACTION
     Dosage: .3 MG, ONCE, SUBCUTANEOUS
     Route: 058
     Dates: start: 20080422, end: 20080422

REACTIONS (2)
  - DEVICE FAILURE [None]
  - DEVICE MALFUNCTION [None]
